FAERS Safety Report 5095535-5 (Version None)
Quarter: 2006Q3

REPORT INFORMATION
  Report Type: 
  Country: None (occurrence: None)
  Receive Date: 20060901
  Receipt Date: 20060825
  Transmission Date: 20061208
  Serious: Yes (Other)
  Sender: FDA-Public Use
  Company Number: DE-ABBOTT-06P-062-0342125-00

PATIENT
  Sex: Female

DRUGS (2)
  1. ERGENYL CHRONO TABLETS [Suspect]
     Indication: DRUG USE FOR UNKNOWN INDICATION
     Route: 048
     Dates: end: 20060813
  2. ERGENYL CHRONO TABLETS [Suspect]
     Route: 048

REACTIONS (5)
  - APATHY [None]
  - ASTHENIA [None]
  - DELIRIUM [None]
  - DRUG LEVEL DECREASED [None]
  - WHITE BLOOD CELL COUNT DECREASED [None]
